FAERS Safety Report 23991417 (Version 2)
Quarter: 2024Q3

REPORT INFORMATION
  Report Type: Spontaneous
  Country: US (occurrence: US)
  Receive Date: 20240619
  Receipt Date: 20240704
  Transmission Date: 20241016
  Serious: Yes (Other)
  Sender: BIOCODEX
  Company Number: US-BIOCODEX2-2024000785

PATIENT
  Age: 5 Year
  Sex: Male
  Weight: 21 kg

DRUGS (7)
  1. DIACOMIT [Suspect]
     Active Substance: STIRIPENTOL
     Indication: Severe myoclonic epilepsy of infancy
     Dosage: DAYS 1 THROUGH 7: TAKE 250 MG BY MOUTH ONCE DAILY.
     Route: 048
     Dates: start: 20240528
  2. DIACOMIT [Suspect]
     Active Substance: STIRIPENTOL
     Indication: Severe myoclonic epilepsy of infancy
     Dosage: DAYS 8 THROUGH 14: TAKE 250 MG BY MOUTH TWICE DAILY.
     Route: 048
     Dates: start: 20240528
  3. DIACOMIT [Suspect]
     Active Substance: STIRIPENTOL
     Indication: Severe myoclonic epilepsy of infancy
     Dosage: DAYS 15 THROUGH 21: TAKE 250 MG AND 500 MG BY MOUTH IN SEPARATE DOSES EACH DAY.
     Route: 048
     Dates: start: 20240528
  4. DIACOMIT [Suspect]
     Active Substance: STIRIPENTOL
     Indication: Severe myoclonic epilepsy of infancy
     Dosage: DAYS 22 AND THEREAFTER: TAKE 500 MG BY MOUTH TWICE DAILY.
     Route: 048
     Dates: start: 20240528, end: 20240625
  5. FINTEPLA [Concomitant]
     Active Substance: FENFLURAMINE
     Indication: Product used for unknown indication
     Route: 065
  6. VALPROIC ACID [Concomitant]
     Active Substance: VALPROIC ACID
     Indication: Product used for unknown indication
     Route: 065
  7. CLONAZEPAM [Concomitant]
     Active Substance: CLONAZEPAM
     Indication: Product used for unknown indication
     Route: 065

REACTIONS (5)
  - Product use in unapproved indication [Unknown]
  - Inappropriate schedule of product administration [Unknown]
  - Rash [Recovered/Resolved]
  - Generalised tonic-clonic seizure [Unknown]
  - Adverse drug reaction [Unknown]

NARRATIVE: CASE EVENT DATE: 20240607
